FAERS Safety Report 9875065 (Version 3)
Quarter: 2014Q1

REPORT INFORMATION
  Report Type: Spontaneous
  Country: US (occurrence: US)
  Receive Date: 20140206
  Receipt Date: 20140305
  Transmission Date: 20141002
  Serious: Yes (Other)
  Sender: FDA-Public Use
  Company Number: CHPA2014US001335

PATIENT
  Age: 68 Year
  Sex: Female

DRUGS (1)
  1. GAS-X ULTRA STRENGTH [Suspect]
     Indication: FLATULENCE
     Dosage: 2 DF, QD
     Route: 048
     Dates: start: 20140112, end: 20140122

REACTIONS (2)
  - Urinary tract infection [Recovered/Resolved]
  - Drug ineffective [Unknown]
